FAERS Safety Report 6002205-5 (Version None)
Quarter: 2008Q4

REPORT INFORMATION
  Report Type: 
  Country: None (occurrence: None)
  Receive Date: 20081212
  Receipt Date: 20081204
  Transmission Date: 20090506
  Serious: Yes (Other)
  Sender: FDA-Public Use
  Company Number: 2008SP024951

PATIENT
  Sex: Male

DRUGS (1)
  1. AFRIN [Suspect]
     Indication: DRUG USE FOR UNKNOWN INDICATION
     Dosage: PRN;NAS

REACTIONS (2)
  - DRUG DEPENDENCE [None]
  - DRUG EFFECT DECREASED [None]
